FAERS Safety Report 5085651-6 (Version None)
Quarter: 2006Q3

REPORT INFORMATION
  Report Type: 
  Country: None (occurrence: None)
  Receive Date: 20060822
  Receipt Date: 20060815
  Transmission Date: 20061208
  Serious: Yes (Other)
  Sender: FDA-Public Use
  Company Number: US-JNJFOC-20060803802

PATIENT
  Sex: Female
  Weight: 77 kg

DRUGS (3)
  1. REMICADE [Suspect]
     Indication: CROHN'S DISEASE
     Route: 042
  2. ASTELIN [Concomitant]
     Indication: RHINITIS ALLERGIC
     Route: 065
  3. BENADRYL [Concomitant]
     Indication: RASH

REACTIONS (2)
  - RASH GENERALISED [None]
  - SYSTEMIC LUPUS ERYTHEMATOSUS [None]
